FAERS Safety Report 18256903 (Version 1)
Quarter: 2020Q3

REPORT INFORMATION
  Report Type: Report from Study
  Country: US (occurrence: US)
  Receive Date: 20200911
  Receipt Date: 20200911
  Transmission Date: 20201103
  Serious: Yes (Hospitalization, Other)
  Sender: FDA-Public Use
  Company Number: US-BAYER-2020-187512

PATIENT
  Age: 60 Year
  Sex: Male

DRUGS (2)
  1. STIVARGA [Suspect]
     Active Substance: REGORAFENIB
     Indication: COLON CANCER
     Dosage: 80 MG DAILY FOR 21 DAYS ON THEN 7 DAYS OFF
     Route: 048
  2. STIVARGA [Suspect]
     Active Substance: REGORAFENIB
     Indication: COLON CANCER
     Dosage: 40 MG DAILY
     Route: 048
     Dates: start: 20200901

REACTIONS (6)
  - Brain oedema [Unknown]
  - Off label use [None]
  - Radiation injury [Unknown]
  - Hospitalisation [Unknown]
  - Blood sodium decreased [Unknown]
  - Dehydration [Unknown]
